FAERS Safety Report 20895758 (Version 1)
Quarter: 2022Q2

REPORT INFORMATION
  Report Type: Report from Study
  Country: PK (occurrence: PK)
  Receive Date: 20220531
  Receipt Date: 20220531
  Transmission Date: 20220720
  Serious: Yes (Other)
  Sender: FDA-Public Use
  Company Number: PK-NOVARTISPH-NVSC2022PK123059

PATIENT
  Age: 58 Year
  Sex: Male
  Weight: 85 kg

DRUGS (1)
  1. KISQALI [Suspect]
     Active Substance: RIBOCICLIB
     Indication: Breast cancer metastatic
     Dosage: 600 MG, QD (3*OD)
     Route: 048
     Dates: start: 20220214

REACTIONS (2)
  - Cerebrovascular accident [Recovered/Resolved]
  - Paralysis [Unknown]

NARRATIVE: CASE EVENT DATE: 20220512
